FAERS Safety Report 23515184 (Version 2)
Quarter: 2024Q1

REPORT INFORMATION
  Report Type: Report from Study
  Country: NL (occurrence: NL)
  Receive Date: 20240213
  Receipt Date: 20240322
  Transmission Date: 20240409
  Serious: Yes (Hospitalization, Other)
  Sender: FDA-Public Use
  Company Number: NL-ABBVIE-5548720

PATIENT
  Age: 67 Year
  Sex: Male

DRUGS (18)
  1. CARBIDOPA\LEVODOPA [Suspect]
     Active Substance: CARBIDOPA\LEVODOPA
     Indication: Parkinson^s disease
     Dosage: ED:2.0ML?DURATION TEXT: REMAINS AT 24 HOURS.
     Route: 050
     Dates: start: 20240108, end: 20240123
  2. CARBIDOPA\LEVODOPA [Suspect]
     Active Substance: CARBIDOPA\LEVODOPA
     Dosage: CND: 2.8?DURATION TEXT: REMAINS AT 24 HOURS
     Route: 050
     Dates: start: 20230918, end: 20231214
  3. CARBIDOPA\LEVODOPA [Suspect]
     Active Substance: CARBIDOPA\LEVODOPA
     Dosage: CND: 2.6?DURATION TEXT: REMAINS AT 24 HOURS
     Route: 050
     Dates: start: 20230908, end: 20230918
  4. CARBIDOPA\LEVODOPA [Suspect]
     Active Substance: CARBIDOPA\LEVODOPA
     Route: 050
  5. CARBIDOPA\LEVODOPA [Suspect]
     Active Substance: CARBIDOPA\LEVODOPA
     Dosage: MD 3.0, CD 4.3, ED 1.5, END 1.5, CND 2.8?DURATION TEXT: REMAINS AT 24 HOURS
     Route: 050
     Dates: start: 20231214, end: 20240108
  6. CARBIDOPA\LEVODOPA [Suspect]
     Active Substance: CARBIDOPA\LEVODOPA
     Dosage: DURATION TEXT: REMAINS AT 24 HOURS
     Route: 050
     Dates: start: 20221117
  7. CARBIDOPA\LEVODOPA [Suspect]
     Active Substance: CARBIDOPA\LEVODOPA
     Dosage: NCD: 3.0MG/ML?DURATION TEXT: REMAINS AT 24 HOURS.
     Route: 050
     Dates: start: 20240123
  8. SINEMET [Concomitant]
     Active Substance: CARBIDOPA\LEVODOPA
     Indication: Product used for unknown indication
     Dosage: 00/25MG?LEVODOPA/CARBIDOPA
     Route: 048
  9. SINEMET [Concomitant]
     Active Substance: CARBIDOPA\LEVODOPA
     Indication: Product used for unknown indication
     Dosage: 00/25MG; 5 X 2?LEVODOPA/CARBIDOPA
     Route: 048
  10. RIVASTIGMINE [Concomitant]
     Active Substance: RIVASTIGMINE
     Indication: Cognitive disorder
     Route: 062
  11. ROTIGOTINE [Concomitant]
     Active Substance: ROTIGOTINE
     Indication: Parkinson^s disease
     Dosage: 6 MILLIGRAM
     Route: 062
  12. BENSERAZIDE\LEVODOPA [Concomitant]
     Active Substance: BENSERAZIDE\LEVODOPA
     Indication: Parkinson^s disease
     Dosage: 100/25MG; 1 X 2,
     Route: 048
  13. MOVICOLON [Concomitant]
     Active Substance: POLYETHYLENE GLYCOL 3350\POTASSIUM CHLORIDE\SODIUM BICARBONATE\SODIUM CHLORIDE
     Indication: Constipation
     Dosage: MACROGOL/ELECTROLYTES NATUREL
     Route: 065
  14. CLOZAPINE [Concomitant]
     Active Substance: CLOZAPINE
     Indication: Hallucination
     Route: 048
  15. MIRTAZAPINE [Concomitant]
     Active Substance: MIRTAZAPINE
     Indication: Depression
     Route: 048
  16. CLONAZEPAM [Concomitant]
     Active Substance: CLONAZEPAM
     Indication: Anxiety
     Route: 048
  17. BENSERAZIDE HYDROCHLORIDE\LEVODOPA [Concomitant]
     Active Substance: BENSERAZIDE HYDROCHLORIDE\LEVODOPA
     Indication: Parkinson^s disease
     Dosage: 100/25MG?LEVODOPA/BENSERAZIDE ?RETARD
  18. BENSERAZIDE HYDROCHLORIDE\LEVODOPA [Concomitant]
     Active Substance: BENSERAZIDE HYDROCHLORIDE\LEVODOPA
     Indication: Parkinson^s disease
     Dosage: 100/25MG; 1 X 2?LEVODOPA/BENSERAZIDE ?RETARD
     Route: 048

REACTIONS (33)
  - Osteoarthritis [Recovered/Resolved]
  - Tension [Not Recovered/Not Resolved]
  - Unevaluable event [Not Recovered/Not Resolved]
  - Mental disorder [Not Recovered/Not Resolved]
  - Muscle rigidity [Not Recovered/Not Resolved]
  - Impaired reasoning [Not Recovered/Not Resolved]
  - Weight decreased [Not Recovered/Not Resolved]
  - Abnormal dreams [Recovering/Resolving]
  - Hallucination [Recovering/Resolving]
  - Hyperkinesia [Recovered/Resolved]
  - Poor quality sleep [Recovering/Resolving]
  - Gait disturbance [Not Recovered/Not Resolved]
  - Reduced facial expression [Not Recovered/Not Resolved]
  - Anxiety [Recovering/Resolving]
  - On and off phenomenon [Not Recovered/Not Resolved]
  - Discomfort [Not Recovered/Not Resolved]
  - Decreased appetite [Not Recovered/Not Resolved]
  - Device issue [Not Recovered/Not Resolved]
  - Mobility decreased [Not Recovered/Not Resolved]
  - Therapeutic product effect incomplete [Not Recovered/Not Resolved]
  - Vitamin B12 deficiency [Not Recovered/Not Resolved]
  - Stoma site hypergranulation [Not Recovered/Not Resolved]
  - Unevaluable event [Recovering/Resolving]
  - Neuropathy peripheral [Not Recovered/Not Resolved]
  - Dyskinesia [Not Recovered/Not Resolved]
  - Underdose [Not Recovered/Not Resolved]
  - Dystonia [Not Recovered/Not Resolved]
  - Fear of falling [Not Recovered/Not Resolved]
  - Infrequent bowel movements [Not Recovered/Not Resolved]
  - Stoma site reaction [Not Recovered/Not Resolved]
  - Energy increased [Unknown]
  - Stoma site erythema [Unknown]
  - Feeding disorder [Not Recovered/Not Resolved]

NARRATIVE: CASE EVENT DATE: 20230101
